FAERS Safety Report 5571351-2 (Version None)
Quarter: 2007Q4

REPORT INFORMATION
  Report Type: 
  Country: None (occurrence: None)
  Receive Date: 20071221
  Receipt Date: 20070809
  Transmission Date: 20080405
  Serious: No
  Sender: FDA-Public Use
  Company Number: A0669215A

PATIENT
  Age: 56 Year
  Sex: Female

DRUGS (2)
  1. FLONASE [Suspect]
     Route: 045
     Dates: start: 20020801
  2. CPAP [Concomitant]

REACTIONS (3)
  - LACRIMATION INCREASED [None]
  - RHINORRHOEA [None]
  - SNEEZING [None]
